FAERS Safety Report 20628619 (Version 1)
Quarter: 2022Q1

REPORT INFORMATION
  Report Type: Spontaneous
  Country: GB (occurrence: GB)
  Receive Date: 20220323
  Receipt Date: 20220323
  Transmission Date: 20220423
  Serious: Yes (Hospitalization, Other)
  Sender: FDA-Public Use
  Company Number: None

PATIENT

DRUGS (9)
  1. IBUPROFEN [Suspect]
     Active Substance: IBUPROFEN
     Indication: Product used for unknown indication
     Route: 065
  2. DESOGESTREL [Concomitant]
     Active Substance: DESOGESTREL
     Dosage: 75MICROGRAM TABLETS ONE TABLET DAILY AT THE SAME TIME EACH DAY 84 TABLET
     Dates: start: 20210910
  3. CITALOPRAM [Concomitant]
     Active Substance: CITALOPRAM HYDROBROMIDE
     Dosage: 10MG TABLETS ONE TO BE TAKEN EACH DAY
     Dates: start: 20210909
  4. ALBUTEROL [Concomitant]
     Active Substance: ALBUTEROL
     Dosage: 100MICROGRAMS/DOSE INHALER CFC FREE ONE OR TWO PUFFS TO BE INHALED FOUR TIMES A DAY WHEN REQUIRED 3
     Dates: start: 20211019
  5. DERMOL 500 [Concomitant]
     Dosage: APPLY TO SKIN 500 ML - NO POD - BEING BROUGHT IN FROM HOME
     Dates: start: 20210909
  6. COCODAMOL [Concomitant]
     Active Substance: ACETAMINOPHEN\CODEINE PHOSPHATE
     Dosage: ONE OR TWO TO BE TAKEN FOUR TIMES A DAY WHEN REQUIRED
     Dates: start: 20210909
  7. MOMETASONE [Concomitant]
     Active Substance: MOMETASONE
     Dosage: 50MICROGRAMS/DOSE NASAL SPRAY TWO SPRAYS TO BE USED IN EACH NOSTRIL TWICE A DAY, THEN REDUCE WHEN SY
     Dates: start: 20210909
  8. NEFOPAM [Concomitant]
     Active Substance: NEFOPAM
     Dosage: 30MG TABLETS ONE TO BE TAKEN THREE TIMES A DAY 90 TABLET
     Dates: start: 20210909
  9. AMOXICILLIN [Concomitant]
     Active Substance: AMOXICILLIN
     Dosage: 500MG CAPSULES ONE TO BE TAKEN THREE TIMES A DAY 21 CAPSULE
     Dates: start: 20211014

REACTIONS (2)
  - Gastrointestinal haemorrhage [Recovered/Resolved]
  - Anaemia [Unknown]
